FAERS Safety Report 13384664 (Version 1)
Quarter: 2017Q1

REPORT INFORMATION
  Report Type: Spontaneous
  Country: US (occurrence: US)
  Receive Date: 20170329
  Receipt Date: 20170329
  Transmission Date: 20170429
  Serious: Yes (Hospitalization)
  Sender: FDA-Public Use
  Company Number: None

PATIENT
  Age: 84 Year
  Sex: Female
  Weight: 60.75 kg

DRUGS (1)
  1. RECLAST [Suspect]
     Active Substance: ZOLEDRONIC ACID
     Indication: OSTEOPOROSIS
     Dosage: ?          OTHER ROUTE:INFUSION?
     Dates: start: 20170216

REACTIONS (5)
  - Headache [None]
  - Pyrexia [None]
  - Arthralgia [None]
  - Eye oedema [None]
  - Asthenia [None]

NARRATIVE: CASE EVENT DATE: 20170216
